FAERS Safety Report 7409913-X (Version None)
Quarter: 2011Q2

REPORT INFORMATION
  Report Type: 
  Country: None (occurrence: None)
  Receive Date: 20110412
  Receipt Date: 20110331
  Transmission Date: 20111010
  Serious: Yes (Other)
  Sender: FDA-Public Use
  Company Number: US-ELI_LILLY_AND_COMPANY-US201104000660

PATIENT
  Sex: Female

DRUGS (1)
  1. HUMALOG [Suspect]
     Indication: TYPE 1 DIABETES MELLITUS
     Route: 058

REACTIONS (7)
  - VISUAL ACUITY REDUCED [None]
  - EYE PROSTHESIS INSERTION [None]
  - IRITIS [None]
  - DIABETIC EYE DISEASE [None]
  - MACULAR HOLE [None]
  - CATARACT SUBCAPSULAR [None]
  - RETINAL DETACHMENT [None]
